FAERS Safety Report 7979413-7 (Version None)
Quarter: 2011Q4

REPORT INFORMATION
  Report Type: 
  Country: None (occurrence: None)
  Receive Date: 20111213
  Receipt Date: 20111213
  Transmission Date: 20120403
  Serious: Yes (Life-Threatening, Hospitalization)
  Sender: FDA-Public Use
  Company Number: None

PATIENT
  Age: 57 Year
  Sex: Male
  Weight: 67.3 kg

DRUGS (2)
  1. BUPIVACAINE HCL [Suspect]
     Indication: ANAESTHESIA
     Dosage: 8 ML ONCE IV
     Route: 042
     Dates: start: 20110627, end: 20110627
  2. SEVOFLURANE [Suspect]
     Indication: ANAESTHESIA
     Dosage: 1 UNITS ONCE INHALE
     Route: 055
     Dates: start: 20110627, end: 20110627

REACTIONS (1)
  - ANGIOEDEMA [None]
